FAERS Safety Report 4314662-0 (Version None)
Quarter: 2004Q1

REPORT INFORMATION
  Report Type: 
  Country: None (occurrence: None)
  Receive Date: 20040308
  Receipt Date: 20040225
  Transmission Date: 20041129
  Serious: Yes (Death, Hospitalization)
  Sender: FDA-Public Use
  Company Number: 2003118667

PATIENT
  Age: 81 Year
  Sex: Male
  Weight: 49 kg

DRUGS (8)
  1. SULPERAZON (CEFOPERAZONE, SULBACTAM) [Suspect]
     Indication: INFLAMMATION
     Dosage: 2 GRAM, INTRAVENOUS
     Route: 042
     Dates: start: 20031109, end: 20031113
  2. MOSAPRIDE CITRATE (MOSAPRIDE CITRATE) [Concomitant]
  3. MAGNESIUM OXIDE (MAGNESIUM OXIDE) [Concomitant]
  4. VERAPAMIL HCL [Concomitant]
  5. FENTANYL [Concomitant]
  6. SENNA LEAF (SENNA LEAF) [Concomitant]
  7. FAMOTIDINE [Concomitant]
  8. PANTETHINE (PANTETHINE) [Concomitant]

REACTIONS (4)
  - CHEST X-RAY ABNORMAL [None]
  - INTERSTITIAL LUNG DISEASE [None]
  - OESOPHAGEAL CARCINOMA [None]
  - PANCREATIC CARCINOMA [None]
